FAERS Safety Report 8458338-7 (Version None)
Quarter: 2012Q2

REPORT INFORMATION
  Report Type: 
  Country: None (occurrence: None)
  Receive Date: 20120323
  Receipt Date: 20111214
  Transmission Date: 20120825
  Serious: Yes (Other)
  Sender: FDA-Public Use
  Company Number: 163-21880-11103254

PATIENT
  Age: 79 Year
  Sex: Male
  Weight: 106.5953 kg

DRUGS (13)
  1. ASPIRIN [Concomitant]
  2. LENALIDOMIDE [Suspect]
     Indication: MULTIPLE MYELOMA
     Dosage: 10 MG, QD DAYS 1-21, 7 DAYS OFF, PO 10 MG, EVERY OTHER DAY, PO 10 MG, QD, PO
     Route: 048
     Dates: start: 20110927
  3. LENALIDOMIDE [Suspect]
     Indication: MULTIPLE MYELOMA
     Dosage: 10 MG, QD DAYS 1-21, 7 DAYS OFF, PO 10 MG, EVERY OTHER DAY, PO 10 MG, QD, PO
     Route: 048
     Dates: start: 20111115
  4. LENALIDOMIDE [Suspect]
     Indication: MULTIPLE MYELOMA
     Dosage: 10 MG, QD DAYS 1-21, 7 DAYS OFF, PO 10 MG, EVERY OTHER DAY, PO 10 MG, QD, PO
     Route: 048
     Dates: start: 20111012
  5. LASIX (FUROSEMDE) [Concomitant]
  6. FLUOXETINE [Concomitant]
  7. OMEPRAZOLE [Concomitant]
  8. DECADRON [Concomitant]
  9. OXYCONTIN [Concomitant]
  10. PRAVASTATIN [Concomitant]
  11. VIAMIN D (ERGOCALCIFEROL) [Concomitant]
  12. OXYCODONE HCL [Concomitant]
  13. METOPROLOL TARTRATE [Concomitant]

REACTIONS (2)
  - RASH PRURITIC [None]
  - RASH [None]
